FAERS Safety Report 25217334 (Version 1)
Quarter: 2025Q2

REPORT INFORMATION
  Report Type: Spontaneous
  Country: GB (occurrence: GB)
  Receive Date: 20250420
  Receipt Date: 20250420
  Transmission Date: 20250716
  Serious: Yes (Life-Threatening, Disabling)
  Sender: AUROBINDO
  Company Number: GB-MHRA-MED-202504052107578080-FRVTZ

PATIENT
  Age: 23 Year
  Sex: Male

DRUGS (2)
  1. NORTRIPTYLINE HYDROCHLORIDE [Suspect]
     Active Substance: NORTRIPTYLINE HYDROCHLORIDE
     Indication: Adverse drug reaction
     Route: 065
     Dates: start: 20120615, end: 20220101
  2. AMITRIPTYLINE [Suspect]
     Active Substance: AMITRIPTYLINE
     Indication: Adverse drug reaction
     Route: 065
     Dates: start: 20220201, end: 20220401

REACTIONS (1)
  - Sexual dysfunction [Not Recovered/Not Resolved]

NARRATIVE: CASE EVENT DATE: 20220415
